FAERS Safety Report 8825868 (Version 1)
Quarter: 2012Q4

REPORT INFORMATION
  Report Type: 
  Country: AU (occurrence: AU)
  Receive Date: 20121005
  Receipt Date: 20121005
  Transmission Date: 20130627
  Serious: Yes (Other)
  Sender: FDA-Public Use
  Company Number: AU-ROCHE-1139807

PATIENT

DRUGS (6)
  1. MABTHERA [Suspect]
     Indication: JUVENILE ARTHRITIS
     Route: 065
  2. MABTHERA [Suspect]
     Indication: SYSTEMIC LUPUS ERYTHEMATOSUS
  3. MABTHERA [Suspect]
     Indication: VASCULITIS
  4. ROACTEMRA [Suspect]
     Indication: JUVENILE ARTHRITIS
     Route: 065
  5. ROACTEMRA [Suspect]
     Indication: SYSTEMIC LUPUS ERYTHEMATOSUS
  6. ROACTEMRA [Suspect]
     Indication: VASCULITIS

REACTIONS (4)
  - Histiocytosis haematophagic [Unknown]
  - Infection [Unknown]
  - Infusion related reaction [Unknown]
  - Autoantibody positive [Unknown]
